FAERS Safety Report 13441955 (Version 1)
Quarter: 2017Q2

REPORT INFORMATION
  Report Type: Spontaneous
  Country: US (occurrence: US)
  Receive Date: 20170414
  Receipt Date: 20170414
  Transmission Date: 20170830
  Serious: No
  Sender: FDA-Public Use
  Company Number: US-TEVA-757569ACC

PATIENT
  Age: 54 Year
  Sex: Female

DRUGS (6)
  1. KLONOPIN [Concomitant]
     Active Substance: CLONAZEPAM
  2. VITAMIN D [Concomitant]
     Active Substance: CHOLECALCIFEROL
  3. COPAXONE [Suspect]
     Active Substance: GLATIRAMER ACETATE
     Indication: MULTIPLE SCLEROSIS
     Route: 058
     Dates: start: 20160202
  4. INDOMETHACIN. [Concomitant]
     Active Substance: INDOMETHACIN
  5. NEURONTIN [Concomitant]
     Active Substance: GABAPENTIN
  6. OXYCODONE [Concomitant]
     Active Substance: OXYCODONE

REACTIONS (2)
  - Slow speech [Unknown]
  - Asthenia [Unknown]

NARRATIVE: CASE EVENT DATE: 201703
